FAERS Safety Report 9709046 (Version 3)
Quarter: 2014Q1

REPORT INFORMATION
  Report Type: Spontaneous
  Country: US (occurrence: US)
  Receive Date: 20131125
  Receipt Date: 20140120
  Transmission Date: 20141002
  Serious: Yes (Hospitalization)
  Sender: FDA-Public Use
  Company Number: US-MERCK-1311USA009088

PATIENT
  Sex: Male

DRUGS (1)
  1. NOXAFIL [Suspect]
     Dosage: 10ML,, Q12H(400MGQ12H)
     Route: 048

REACTIONS (1)
  - Adverse event [Not Recovered/Not Resolved]
